FAERS Safety Report 8219852-2 (Version None)
Quarter: 2012Q1

REPORT INFORMATION
  Report Type: 
  Country: None (occurrence: None)
  Receive Date: 20120319
  Receipt Date: 20120313
  Transmission Date: 20120608
  Serious: Yes (Death, Hospitalization)
  Sender: FDA-Public Use
  Company Number: DE-CELGENEUS-062-21880-11062275

PATIENT
  Age: 65 Year
  Sex: Male
  Weight: 70 kg

DRUGS (3)
  1. DEXAMETHASONE [Concomitant]
     Dosage: 20 MILLIGRAM
     Route: 065
     Dates: start: 20110610, end: 20110611
  2. ENOXAPARIN SODIUM [Concomitant]
     Dosage: 60 MILLIGRAM
     Route: 065
  3. REVLIMID [Suspect]
     Indication: MULTIPLE MYELOMA
     Dosage: 10 MILLIGRAM
     Route: 048
     Dates: start: 20110610, end: 20110611

REACTIONS (5)
  - CARDIAC FAILURE [None]
  - RENAL FAILURE [None]
  - LUNG INFILTRATION [None]
  - PSYCHOTIC DISORDER [None]
  - THROMBOCYTOPENIA [None]
